FAERS Safety Report 17815132 (Version 3)
Quarter: 2020Q2

REPORT INFORMATION
  Report Type: Spontaneous
  Country: US (occurrence: US)
  Receive Date: 20200522
  Receipt Date: 20200625
  Transmission Date: 20200714
  Serious: Yes (Other)
  Sender: FDA-Public Use
  Company Number: US-APOTEX-2020AP011027

PATIENT
  Age: 44 Year
  Sex: Male

DRUGS (3)
  1. OLANZAPINE. [Suspect]
     Active Substance: OLANZAPINE
     Dosage: 2 UNK, UNK
     Route: 048
  2. OLANZAPINE. [Suspect]
     Active Substance: OLANZAPINE
     Indication: OBSESSIVE-COMPULSIVE DISORDER
     Dosage: 1 DF, Q.H.S.
     Route: 048
     Dates: start: 202003
  3. OLANZAPINE. [Suspect]
     Active Substance: OLANZAPINE
     Indication: SLEEP DISORDER
     Dosage: 4 DF, UNK
     Route: 048
     Dates: start: 20200311

REACTIONS (7)
  - Snoring [Recovered/Resolved]
  - Respiratory rate decreased [Recovered/Resolved]
  - Dyspnoea [Recovered/Resolved]
  - Sleep apnoea syndrome [Recovered/Resolved]
  - Dyspnoea [Recovered/Resolved]
  - Apnoea [Recovered/Resolved]
  - Intentional product use issue [Unknown]

NARRATIVE: CASE EVENT DATE: 202003
